FAERS Safety Report 25328470 (Version 1)
Quarter: 2025Q2

REPORT INFORMATION
  Report Type: Report from Study
  Country: EG (occurrence: EG)
  Receive Date: 20250518
  Receipt Date: 20250518
  Transmission Date: 20250717
  Serious: Yes (Hospitalization)
  Sender: ABBVIE
  Company Number: EG-ABBVIE-6279622

PATIENT
  Age: 12 Year
  Sex: Female
  Weight: 50 kg

DRUGS (4)
  1. HUMIRA [Suspect]
     Active Substance: ADALIMUMAB
     Indication: Juvenile idiopathic arthritis
     Dosage: FORM STRENGTH: 40 MILLIGRAM
     Route: 058
     Dates: start: 2016
  2. HUMIRA [Suspect]
     Active Substance: ADALIMUMAB
     Indication: Uveitis
  3. Optipred [Concomitant]
     Indication: Uveitis
  4. CORTISONE [Concomitant]
     Active Substance: CORTISONE
     Indication: Uveitis
     Dosage: INJECTION IN THE EYELID. 20 MILLIGRAM

REACTIONS (7)
  - Cataract [Recovered/Resolved]
  - Joint swelling [Recovered/Resolved]
  - Eye disorder [Not Recovered/Not Resolved]
  - Polyarthritis [Not Recovered/Not Resolved]
  - Gait inability [Unknown]
  - Arthritis [Unknown]
  - Eye inflammation [Not Recovered/Not Resolved]

NARRATIVE: CASE EVENT DATE: 20250301
